FAERS Safety Report 23361204 (Version 2)
Quarter: 2024Q1

REPORT INFORMATION
  Report Type: Spontaneous
  Country: US (occurrence: US)
  Receive Date: 20240103
  Receipt Date: 20240111
  Transmission Date: 20240409
  Serious: Yes (Other)
  Sender: FDA-Public Use
  Company Number: US-ALCON LABORATORIES-ALC2023US005823

PATIENT
  Age: 28 Year
  Sex: Female

DRUGS (2)
  1. SYSTANE NIGHTTIME [Suspect]
     Active Substance: MINERAL OIL\PETROLATUM
     Indication: Dry eye
     Dosage: UNK
     Route: 047
     Dates: start: 20231217, end: 20231219
  2. SYSTANE NIGHTTIME [Suspect]
     Active Substance: MINERAL OIL\PETROLATUM
     Indication: Eye lubrication therapy
     Dosage: UNK
     Route: 047
     Dates: start: 2022

REACTIONS (8)
  - Ulcerative keratitis [Recovered/Resolved]
  - Ulcerative keratitis [Not Recovered/Not Resolved]
  - Product physical consistency issue [Unknown]
  - Product availability issue [Unknown]
  - Drug ineffective [Unknown]
  - Product dispensing error [Unknown]
  - Patient dissatisfaction with treatment [Unknown]
  - Poor quality sleep [Not Recovered/Not Resolved]

NARRATIVE: CASE EVENT DATE: 20221001
